FAERS Safety Report 6259602-2 (Version None)
Quarter: 2009Q3

REPORT INFORMATION
  Report Type: 
  Country: None (occurrence: None)
  Receive Date: 20090702
  Receipt Date: 20090616
  Transmission Date: 20100115
  Serious: Yes (Death, Hospitalization)
  Sender: FDA-Public Use
  Company Number: WAES 0906USA02174

PATIENT
  Age: 67 Year
  Sex: Male

DRUGS (3)
  1. DECADRON [Suspect]
     Indication: NON-SMALL CELL LUNG CANCER
     Dosage: 4 MG PO
     Route: 048
     Dates: start: 20080916
  2. FOLIC ACID [Suspect]
     Indication: NON-SMALL CELL LUNG CANCER
     Dosage: 25.MG/DAILY PO
     Route: 048
     Dates: start: 20080912
  3. ALIMTA [Suspect]
     Indication: NON-SMALL CELL LUNG CANCER
     Dates: start: 20080917

REACTIONS (13)
  - ANAEMIA [None]
  - BLOOD GLUCOSE INCREASED [None]
  - BLOOD POTASSIUM DECREASED [None]
  - BLOOD UREA INCREASED [None]
  - DYSPNOEA [None]
  - GAMMA-GLUTAMYLTRANSFERASE INCREASED [None]
  - HYPONATRAEMIA [None]
  - MALIGNANT NEOPLASM PROGRESSION [None]
  - NON-SMALL CELL LUNG CANCER [None]
  - PROTEIN TOTAL DECREASED [None]
  - SERUM FERRITIN INCREASED [None]
  - THROMBOCYTOPENIA [None]
  - VITAMIN B12 INCREASED [None]
